FAERS Safety Report 12490256 (Version 1)
Quarter: 2016Q2

REPORT INFORMATION
  Report Type: Spontaneous
  Country: GB (occurrence: GB)
  Receive Date: 20160622
  Receipt Date: 20160622
  Transmission Date: 20160815
  Serious: Yes (Other)
  Sender: FDA-Public Use
  Company Number: GB-B.I. PHARMACEUTICALS,INC./RIDGEFIELD-2016-BI-39433UK

PATIENT
  Age: 84 Year
  Sex: Female

DRUGS (2)
  1. DULCOLAX NOS [Suspect]
     Active Substance: BISACODYL OR DOCUSATE SODIUM
     Indication: CONSTIPATION
     Dosage: 2 ANZ
     Route: 065
  2. DULCOLAX NOS [Suspect]
     Active Substance: BISACODYL OR DOCUSATE SODIUM
     Indication: GASTROINTESTINAL MOTILITY DISORDER

REACTIONS (9)
  - Dysstasia [Unknown]
  - Pain in extremity [Unknown]
  - Myocardial infarction [Unknown]
  - Fall [Unknown]
  - Malaise [Unknown]
  - Insomnia [Unknown]
  - Burning sensation [Unknown]
  - Hepatic pain [Unknown]
  - Renal pain [Unknown]

NARRATIVE: CASE EVENT DATE: 1978
